FAERS Safety Report 9556728 (Version 2)
Quarter: 2013Q3

REPORT INFORMATION
  Report Type: Spontaneous
  Country: CN (occurrence: CN)
  Receive Date: 20130926
  Receipt Date: 20130927
  Transmission Date: 20140515
  Serious: Yes (Death)
  Sender: FDA-Public Use
  Company Number: CN-ASTRAZENECA-2013SE71314

PATIENT
  Age: 27481 Day
  Sex: Female
  Weight: 70 kg

DRUGS (4)
  1. NAROPIN [Suspect]
     Indication: EPIDURAL ANAESTHESIA
     Route: 008
     Dates: start: 20110628, end: 20110628
  2. ALANYL GLUTAMINE [Suspect]
     Route: 041
     Dates: start: 20110628, end: 20110628
  3. DYNASTAT [Concomitant]
     Dates: start: 20110628
  4. RAMOSETRON [Concomitant]
     Dates: start: 20110628

REACTIONS (1)
  - Cardiac arrest [Fatal]
